FAERS Safety Report 10196649 (Version 1)
Quarter: 2014Q2

REPORT INFORMATION
  Report Type: Spontaneous
  Country: US (occurrence: US)
  Receive Date: 20140527
  Receipt Date: 20140527
  Transmission Date: 20141212
  Serious: No
  Sender: FDA-Public Use
  Company Number: US-B.I. PHARMACEUTICALS,INC./RIDGEFIELD-2014-BI-21759BP

PATIENT
  Sex: Female
  Weight: 57 kg

DRUGS (3)
  1. COMBIVENT [Suspect]
     Indication: CHRONIC OBSTRUCTIVE PULMONARY DISEASE
     Dosage: STRENGTH: 20 MCG / 100 MCG; DAILY DOSE: 80 MCG/ 400 MCG
     Route: 055
     Dates: start: 2013
  2. DALIRESP [Concomitant]
     Indication: CHRONIC OBSTRUCTIVE PULMONARY DISEASE
     Dosage: 10 MG
     Route: 048
  3. TUDORZA [Concomitant]
     Indication: CHRONIC OBSTRUCTIVE PULMONARY DISEASE
     Route: 055

REACTIONS (1)
  - Nasal congestion [Not Recovered/Not Resolved]
